FAERS Safety Report 4765731-2 (Version None)
Quarter: 2005Q3

REPORT INFORMATION
  Report Type: 
  Country: None (occurrence: None)
  Receive Date: 20050907
  Receipt Date: 20050902
  Transmission Date: 20060218
  Serious: Yes (Life-Threatening, Other)
  Sender: FDA-Public Use
  Company Number: GBWYE948502SEP05

PATIENT
  Age: 41 Year

DRUGS (1)
  1. EFFEXOR [Suspect]
     Indication: DEPRESSION
     Dosage: 150MG
     Route: 048
     Dates: start: 20050101, end: 20050422

REACTIONS (2)
  - AGGRESSION [None]
  - INTENTIONAL SELF-INJURY [None]
